FAERS Safety Report 9779722 (Version 4)
Quarter: 2014Q4

REPORT INFORMATION
  Report Type: Spontaneous
  Country: US (occurrence: US)
  Receive Date: 20131223
  Receipt Date: 20141205
  Transmission Date: 20150529
  Serious: Yes (Hospitalization)
  Sender: FDA-Public Use
  Company Number: US-BRISTOL-MYERS SQUIBB COMPANY-19913573

PATIENT
  Sex: Male

DRUGS (2)
  1. COUMADIN [Suspect]
     Active Substance: WARFARIN SODIUM
     Dosage: TABS AND 5 MG TABS
  2. BYETTA [Suspect]
     Active Substance: EXENATIDE
     Dosage: THERAPY UNTIL 5JUN13.5O06,5N06,5D06,05JA07,5F07,5M07,5A07,5MY07,5JUN07,5JL07,5AP08,5MY08,2AP09.
     Dates: start: 20060905, end: 20130605

REACTIONS (2)
  - Toxicity to various agents [Unknown]
  - Adenocarcinoma pancreas [Unknown]

NARRATIVE: CASE EVENT DATE: 2013
